FAERS Safety Report 8338429-1 (Version None)
Quarter: 2012Q2

REPORT INFORMATION
  Report Type: 
  Country: None (occurrence: None)
  Receive Date: 20120504
  Receipt Date: 20120427
  Transmission Date: 20120825
  Serious: Yes (Congenital Anomaly)
  Sender: FDA-Public Use
  Company Number: DE-JNJFOC-20120502695

PATIENT

DRUGS (5)
  1. LEVETIRACETAM [Suspect]
     Indication: FOETAL EXPOSURE DURING PREGNANCY
     Route: 064
  2. LAMOTRIGINE [Suspect]
     Indication: FOETAL EXPOSURE DURING PREGNANCY
     Route: 064
  3. OXCARBAZEPINE [Suspect]
     Indication: FOETAL EXPOSURE DURING PREGNANCY
     Route: 064
  4. TOPIRAMATE [Suspect]
     Indication: FOETAL EXPOSURE DURING PREGNANCY
     Route: 064
  5. GABAPENTIN [Suspect]
     Indication: FOETAL EXPOSURE DURING PREGNANCY
     Route: 064

REACTIONS (1)
  - CONGENITAL ANOMALY [None]
